FAERS Safety Report 24444467 (Version 2)
Quarter: 2024Q4

REPORT INFORMATION
  Report Type: Report from Study
  Country: US (occurrence: US)
  Receive Date: 20241016
  Receipt Date: 20241017
  Transmission Date: 20250115
  Serious: No
  Sender: ROCHE
  Company Number: US-ROCHE-2830500

PATIENT
  Age: 58 Year
  Sex: Female

DRUGS (3)
  1. RITUXAN [Suspect]
     Active Substance: RITUXIMAB
     Indication: Immunology test abnormal
     Dosage: 1 WEEKLY X 4 WEEKLY, REPEAT Q4M ( 600 MG 4 VIALS 100 MG 4 VIALS )
     Route: 041
  2. RITUXAN [Suspect]
     Active Substance: RITUXIMAB
     Indication: Selective IgG subclass deficiency
  3. RITUXAN [Suspect]
     Active Substance: RITUXIMAB
     Indication: Immunodeficiency

REACTIONS (6)
  - Off label use [Unknown]
  - Swelling [Not Recovered/Not Resolved]
  - Alopecia [Not Recovered/Not Resolved]
  - Madarosis [Not Recovered/Not Resolved]
  - Decreased appetite [Not Recovered/Not Resolved]
  - Incorrect drug administration rate [Unknown]

NARRATIVE: CASE EVENT DATE: 20231101
